FAERS Safety Report 8989255 (Version 1)
Quarter: 2012Q4

REPORT INFORMATION
  Report Type: 
  Country: US (occurrence: US)
  Receive Date: 20121227
  Receipt Date: 20121227
  Transmission Date: 20130627
  Serious: No
  Sender: FDA-Public Use
  Company Number: US-009507513-1212USA008436

PATIENT

DRUGS (1)
  1. AZASITE [Suspect]
     Dosage: 1 % in both eyes, tid
     Route: 047

REACTIONS (2)
  - Overdose [Unknown]
  - No adverse event [Unknown]
